FAERS Safety Report 24005340 (Version 2)
Quarter: 2024Q3

REPORT INFORMATION
  Report Type: Spontaneous
  Country: JP (occurrence: JP)
  Receive Date: 20240624
  Receipt Date: 20240724
  Transmission Date: 20241016
  Serious: Yes (Other)
  Sender: JOHNSON AND JOHNSON
  Company Number: JP-JNJFOC-20240651635

PATIENT
  Age: 75 Year
  Sex: Male
  Weight: 53.7 kg

DRUGS (3)
  1. DARATUMUMAB [Suspect]
     Active Substance: DARATUMUMAB
     Indication: Plasma cell myeloma
     Dosage: DOSE UNKNOWN, 19+ CYCLE
     Route: 058
  2. LENALIDOMIDE [Suspect]
     Active Substance: LENALIDOMIDE
     Indication: Plasma cell myeloma
     Dosage: 19+ CYCLE
     Route: 048
  3. DEXAMETHASONE [Suspect]
     Active Substance: DEXAMETHASONE
     Indication: Plasma cell myeloma
     Dosage: DOSE UNKNOWN, 19+ CYCLE
     Route: 065

REACTIONS (1)
  - Subarachnoid haemorrhage [Unknown]
